FAERS Safety Report 9200949 (Version 1)
Quarter: 2013Q2

REPORT INFORMATION
  Report Type: Spontaneous
  Country: IT (occurrence: IT)
  Receive Date: 20130401
  Receipt Date: 20130401
  Transmission Date: 20140414
  Serious: Yes (Other)
  Sender: FDA-Public Use
  Company Number: IT-TEVA-394501ISR

PATIENT
  Age: 77 Year
  Sex: Female

DRUGS (7)
  1. FLUOROURACILE [Suspect]
     Indication: RECTAL CANCER
     Dosage: 544 MILLIGRAM DAILY;
     Route: 040
     Dates: start: 20121105, end: 20121105
  2. FLUOROURACILE [Suspect]
     Dosage: 816 MILLIGRAM DAILY; 1G/20 ML
     Route: 042
     Dates: start: 20121105, end: 20121106
  3. AVASTIN [Suspect]
     Indication: RECTAL CANCER
     Dosage: 260 MILLIGRAM DAILY;
     Route: 042
     Dates: start: 20121105, end: 20121105
  4. IRINOTECAN [Suspect]
     Indication: RECTAL CANCER
     Dosage: 244.8 MILLIGRAM DAILY;
     Route: 042
     Dates: start: 20121105, end: 20121105
  5. RANIDIL [Concomitant]
     Indication: RECTAL CANCER
     Dosage: 50 MILLIGRAM DAILY; 50MG / 5ML
     Route: 042
     Dates: start: 20121105, end: 20121105
  6. ONDANSETRONE HIKMA [Concomitant]
     Indication: RECTAL CANCER
     Dosage: 8 MILLIGRAM DAILY; 8MG / 4ML
     Route: 042
     Dates: start: 20121105, end: 20121105
  7. SOLDESAM [Concomitant]
     Indication: RECTAL CANCER
     Dosage: 8 MILLIGRAM DAILY; 8MG / 2ML
     Route: 042
     Dates: start: 20121105, end: 20121105

REACTIONS (8)
  - Nausea [Recovering/Resolving]
  - Vomiting [Recovering/Resolving]
  - Diarrhoea [Recovering/Resolving]
  - Stomatitis [Recovering/Resolving]
  - Conjunctivitis [Recovering/Resolving]
  - Dyspnoea [Recovering/Resolving]
  - Dyspnoea [Recovering/Resolving]
  - Nail discolouration [Recovering/Resolving]
